FAERS Safety Report 6336911-X (Version None)
Quarter: 2009Q3

REPORT INFORMATION
  Report Type: 
  Country: None (occurrence: None)
  Receive Date: 20090901
  Receipt Date: 20090824
  Transmission Date: 20100115
  Serious: Yes (Hospitalization, Other)
  Sender: FDA-Public Use
  Company Number: PHHY2009CN36545

PATIENT
  Age: 52 Year
  Sex: Female

DRUGS (3)
  1. KAFLAN [Suspect]
     Indication: RHEUMATOID ARTHRITIS
     Dosage: 50 MG, QD
     Route: 048
  2. BISMUTH [Concomitant]
     Dosage: 110 MG, TID
  3. TECHNETIUM TC 99M METHYLENE DIPHOSPHONATE [Concomitant]
     Dosage: 200 MG, UNK

REACTIONS (25)
  - ANAEMIA [None]
  - AORTIC VALVE INCOMPETENCE [None]
  - CHEST DISCOMFORT [None]
  - COUGH [None]
  - DILATATION VENTRICULAR [None]
  - DYSPNOEA [None]
  - GLOMERULOSCLEROSIS [None]
  - GLUCOSE URINE PRESENT [None]
  - HAEMODIALYSIS [None]
  - HYPERPLASIA [None]
  - LEFT ATRIAL DILATATION [None]
  - MALAISE [None]
  - MENTAL DISORDER [None]
  - MITRAL VALVE INCOMPETENCE [None]
  - NAUSEA [None]
  - OROPHARYNGEAL PAIN [None]
  - PERICARDIAL EFFUSION [None]
  - RENAL AMYLOIDOSIS [None]
  - RENAL DISORDER [None]
  - RENAL FAILURE ACUTE [None]
  - RENAL FAILURE CHRONIC [None]
  - RENAL TUBULAR NECROSIS [None]
  - TUBULOINTERSTITIAL NEPHRITIS [None]
  - VOMITING [None]
  - WHITE BLOOD CELLS URINE POSITIVE [None]
